FAERS Safety Report 8932489 (Version 1)
Quarter: 2012Q4

REPORT INFORMATION
  Report Type: Spontaneous
  Country: US (occurrence: None)
  Receive Date: 20121119
  Receipt Date: 20121119
  Transmission Date: 20130627
  Serious: Yes (Death, Hospitalization)
  Sender: FDA-Public Use
  Company Number: GER/UKI/12/0026608

PATIENT
  Age: 73 Year
  Sex: Male
  Weight: 67.3 kg

DRUGS (7)
  1. GEMCITABINE (GEMCITABINE) [Suspect]
     Indication: PANCREATIC CANCER
     Dosage: 1862 mg, cyclical, intravenous (not otherwise specified)
     Route: 042
     Dates: start: 20120507, end: 20120907
  2. GEMCITABINE (GEMCITABINE) [Suspect]
     Indication: PANCREATIC CANCER
     Dosage: 1862 mg, cyclical, intravenous (not otherwise specified)
     Route: 042
  3. BISOPROLOL (BISOPROLOL) [Concomitant]
  4. CREON (PANCREATIN) [Concomitant]
  5. GRANISETRON (GRANISETRON) [Concomitant]
  6. LOPERAMIDE (LOPERAMIDE) [Concomitant]
  7. WARFARIN (WARFARIN) [Concomitant]

REACTIONS (6)
  - Pneumonitis [None]
  - Thrombosis [None]
  - Malaise [None]
  - General physical health deterioration [None]
  - Peripheral ischaemia [None]
  - Leg amputation [None]
